FAERS Safety Report 10412300 (Version 2)
Quarter: 2014Q4

REPORT INFORMATION
  Report Type: Spontaneous
  Country: US (occurrence: US)
  Receive Date: 20140827
  Receipt Date: 20141001
  Transmission Date: 20150528
  Serious: Yes (Other)
  Sender: FDA-Public Use
  Company Number: US-BAYER-2014-125017

PATIENT
  Age: 43 Year
  Sex: Female
  Weight: 81 kg

DRUGS (1)
  1. STIVARGA [Suspect]
     Active Substance: REGORAFENIB
     Indication: COLON CANCER METASTATIC
     Dosage: 120 MG DAILY (3 WEEKS ON/ 1 WEEK OFF)
     Dates: start: 20140304, end: 20140430

REACTIONS (5)
  - Hyperbilirubinaemia [None]
  - Pain of skin [None]
  - Aspartate aminotransferase increased [None]
  - Fatigue [None]
  - Bladder spasm [None]
